FAERS Safety Report 4910147-9 (Version None)
Quarter: 2006Q1

REPORT INFORMATION
  Report Type: 
  Country: None (occurrence: None)
  Receive Date: 20060209
  Receipt Date: 20060127
  Transmission Date: 20060701
  Serious: Yes (Death)
  Sender: FDA-Public Use
  Company Number: L05-USA-03935-18

PATIENT
  Age: 83 Year
  Sex: Female

DRUGS (4)
  1. DILTIAZEM HCL [Suspect]
  2. ASPIRIN [Suspect]
  3. ACETAMINOPHEN [Suspect]
  4. CHLORDIAZEPOXIDE W/CLIDINUM BROMIDE [Suspect]

REACTIONS (6)
  - BLOOD PH DECREASED [None]
  - BLOOD PRESSURE DECREASED [None]
  - COMPLETED SUICIDE [None]
  - DRUG TOXICITY [None]
  - HEART RATE DECREASED [None]
  - THERAPY NON-RESPONDER [None]
